FAERS Safety Report 7364194-0 (Version None)
Quarter: 2011Q1

REPORT INFORMATION
  Report Type: 
  Country: None (occurrence: None)
  Receive Date: 20110321
  Receipt Date: 20110314
  Transmission Date: 20110831
  Serious: Yes (Disabling)
  Sender: FDA-Public Use
  Company Number: US-US-EMD SERONO, INC.-7021293

PATIENT
  Sex: Female

DRUGS (1)
  1. REBIF [Suspect]
     Indication: MULTIPLE SCLEROSIS
     Route: 058
     Dates: start: 20060912

REACTIONS (4)
  - PYREXIA [None]
  - MULTIPLE SCLEROSIS RELAPSE [None]
  - MENIERE'S DISEASE [None]
  - CONSTIPATION [None]
